FAERS Safety Report 23161825 (Version 1)
Quarter: 2023Q4

REPORT INFORMATION
  Report Type: Spontaneous
  Country: NL (occurrence: NL)
  Receive Date: 20231108
  Receipt Date: 20231108
  Transmission Date: 20240110
  Serious: Yes (Other)
  Sender: FDA-Public Use
  Company Number: None

PATIENT
  Age: 68 Year
  Sex: Male
  Weight: 110.5 kg

DRUGS (23)
  1. PIRFENIDONE [Suspect]
     Active Substance: PIRFENIDONE
     Indication: Organising pneumonia
     Dosage: 2403 MILLIGRAM DAILY; 3X A DAY, BRAND NAME NOT SPECIFIED
     Dates: start: 20230811, end: 20230920
  2. PIRFENIDONE [Suspect]
     Active Substance: PIRFENIDONE
     Indication: Idiopathic interstitial pneumonia
  3. DESLORATADINE GLENMARK [Concomitant]
     Indication: Product used for unknown indication
  4. NITROLINGUAL [Concomitant]
     Active Substance: NITROGLYCERIN
     Indication: Product used for unknown indication
     Dosage: OROMUCOSAL SPRAY, FLAC 250DO
  5. METFORMIN [Concomitant]
     Active Substance: METFORMIN HYDROCHLORIDE
     Indication: Product used for unknown indication
     Dosage: BRAND NAME NOT SPECIFIED
  6. DIARREEREMMER HTP [Concomitant]
     Indication: Product used for unknown indication
  7. EZETIMIBE [Concomitant]
     Active Substance: EZETIMIBE
     Indication: Product used for unknown indication
  8. TEMAZEPAM [Concomitant]
     Active Substance: TEMAZEPAM
     Indication: Product used for unknown indication
     Dosage: BRAND NAME NOT SPECIFIED
  9. LIPITOR [Concomitant]
     Active Substance: ATORVASTATIN CALCIUM
     Indication: Product used for unknown indication
     Dosage: SEE ATTACHED LIST 10-10-2023 DATA, DOCTORS AND MEDICINES
  10. NITROFURANTOIN [Concomitant]
     Active Substance: NITROFURANTOIN
     Indication: Product used for unknown indication
     Dosage: CAPSULE MGA
  11. FUROSEMIDE [Concomitant]
     Active Substance: FUROSEMIDE
     Indication: Product used for unknown indication
  12. CELLCEPT [Concomitant]
     Active Substance: MYCOPHENOLATE MOFETIL
     Indication: Product used for unknown indication
  13. OXAZEPAM TEVA [Concomitant]
     Indication: Product used for unknown indication
  14. SOTALOL [Concomitant]
     Active Substance: SOTALOL
     Indication: Product used for unknown indication
     Dosage: BRAND NAME NOT SPECIFIED
  15. OXYCODONE HCL AUROBINDO [Concomitant]
     Indication: Product used for unknown indication
  16. FENTANYL [Concomitant]
     Active Substance: FENTANYL\FENTANYL CITRATE
     Indication: Product used for unknown indication
     Dosage: PLASTER, (GENERIC+DUROGESIC), FORM STRENGTH : 75MCG/HOUR
  17. MEN 50+ CENTRUM [Concomitant]
     Indication: Product used for unknown indication
  18. BUDESONIDE TEVA STERI-NEB [Concomitant]
     Indication: Product used for unknown indication
     Dosage: AMP 2ML
  19. FYTOMENADION ACE [Concomitant]
     Indication: Product used for unknown indication
  20. TAMSULOSINE HCL CF [Concomitant]
     Indication: Product used for unknown indication
     Dosage: CAPSULE MGA
  21. PREDNISOLONE [Concomitant]
     Active Substance: PREDNISOLONE
     Indication: Product used for unknown indication
     Dosage: BRAND NAME NOT SPECIFIED
  22. ACENOCOUMAROL TEVA [Concomitant]
     Indication: Product used for unknown indication
  23. TACAL D3 [Concomitant]
     Indication: Product used for unknown indication
     Dosage: FORM STRENGTH : 1.25G/400IU (500MG CA), 500MG/400IU MINT

REACTIONS (3)
  - Nephrolithiasis [Recovering/Resolving]
  - Cystitis noninfective [Recovering/Resolving]
  - Blood glucose increased [Not Recovered/Not Resolved]
